FAERS Safety Report 16715759 (Version 1)
Quarter: 2019Q3

REPORT INFORMATION
  Report Type: Report from Study
  Country: FI (occurrence: FI)
  Receive Date: 20190819
  Receipt Date: 20190819
  Transmission Date: 20191005
  Serious: Yes (Other)
  Sender: FDA-Public Use
  Company Number: FI-ROCHE-2378392

PATIENT

DRUGS (2)
  1. TOCILIZUMAB. [Suspect]
     Active Substance: TOCILIZUMAB
     Indication: JUVENILE IDIOPATHIC ARTHRITIS
     Route: 042
  2. METHOTREXATE. [Concomitant]
     Active Substance: METHOTREXATE

REACTIONS (28)
  - Pharyngitis [Unknown]
  - Influenza [Unknown]
  - Bacterial sepsis [Unknown]
  - Upper respiratory tract infection [Unknown]
  - Otitis media acute [Unknown]
  - Skin infection [Unknown]
  - Dyspepsia [Unknown]
  - Tooth infection [Unknown]
  - Infection [Unknown]
  - Migraine [Unknown]
  - Osteonecrosis [Unknown]
  - Diarrhoea [Unknown]
  - Low density lipoprotein increased [Unknown]
  - Sinusitis [Unknown]
  - Nausea [Unknown]
  - Abdominal pain [Unknown]
  - Transaminases increased [Unknown]
  - Aphthous ulcer [Unknown]
  - Bartholin^s abscess [Unknown]
  - Gastroenteritis [Unknown]
  - Neutropenia [Unknown]
  - Skin papilloma [Unknown]
  - Pneumonia [Unknown]
  - Blood cholesterol increased [Unknown]
  - Conjunctivitis [Unknown]
  - Therapeutic product effect decreased [Unknown]
  - Rash [Unknown]
  - Urticaria [Unknown]
